FAERS Safety Report 5370801-4 (Version None)
Quarter: 2007Q2

REPORT INFORMATION
  Report Type: 
  Country: None (occurrence: None)
  Receive Date: 20070626
  Receipt Date: 20070621
  Transmission Date: 20071010
  Serious: Yes (Other)
  Sender: FDA-Public Use
  Company Number: B0476556A

PATIENT
  Age: 1 Year
  Sex: Female
  Weight: 8.4 kg

DRUGS (3)
  1. ZIDOVUDINE [Suspect]
     Indication: HIV INFECTION
     Dosage: 70MG TWICE PER DAY
     Route: 048
     Dates: start: 20070514, end: 20070612
  2. LAMIVUDINE [Suspect]
     Indication: HIV INFECTION
     Dosage: 30MG TWICE PER DAY
     Route: 048
     Dates: start: 20070514, end: 20070612
  3. KALETRA [Suspect]
     Indication: HIV INFECTION
     Dosage: 120MG TWICE PER DAY
     Route: 048
     Dates: start: 20070514, end: 20070612

REACTIONS (1)
  - PNEUMONIA [None]
